FAERS Safety Report 4355635-1 (Version None)
Quarter: 2004Q2

REPORT INFORMATION
  Report Type: 
  Country: None (occurrence: None)
  Receive Date: 20040505
  Receipt Date: 20040423
  Transmission Date: 20050107
  Serious: Yes (Other)
  Sender: FDA-Public Use
  Company Number: US-JNJFOC-20031101181

PATIENT
  Age: 62 Year
  Sex: Female
  Weight: 201 kg

DRUGS (6)
  1. REMICADE [Suspect]
     Indication: CROHN'S DISEASE
     Dosage: INTRAVENOUS; 450 MG, INTRAVENOUS
     Route: 042
     Dates: start: 20030929
  2. REMICADE [Suspect]
     Indication: CROHN'S DISEASE
     Dosage: INTRAVENOUS; 450 MG, INTRAVENOUS
     Route: 042
     Dates: start: 20031017
  3. PENTASA [Concomitant]
  4. PREDNISONE [Concomitant]
  5. FOLIC ACID [Concomitant]
  6. PREVACID [Concomitant]

REACTIONS (8)
  - ANAPHYLACTIC REACTION [None]
  - ARRHYTHMIA [None]
  - CHEST PAIN [None]
  - CROHN'S DISEASE [None]
  - GOUT [None]
  - INFUSION RELATED REACTION [None]
  - SELF-MEDICATION [None]
  - WEIGHT INCREASED [None]
